FAERS Safety Report 18687943 (Version 1)
Quarter: 2020Q4

REPORT INFORMATION
  Report Type: Spontaneous
  Country: US (occurrence: US)
  Receive Date: 20201230
  Receipt Date: 20201230
  Transmission Date: 20210114
  Serious: Yes (Hospitalization)
  Sender: FDA-Public Use
  Company Number: None

PATIENT
  Age: 63 Year
  Sex: Female

DRUGS (13)
  1. PANTOPRAZOLE [Concomitant]
     Active Substance: PANTOPRAZOLE
  2. LEVOTHYROXIN [Concomitant]
     Active Substance: LEVOTHYROXINE
  3. ONDASETRON [Concomitant]
     Active Substance: ONDANSETRON
  4. POT CL MICRO [Concomitant]
  5. VIT D [Concomitant]
     Active Substance: VITAMIN D NOS
  6. TEMOZOLOMIDE. [Suspect]
     Active Substance: TEMOZOLOMIDE
     Indication: SKIN CANCER
     Dosage: ?          OTHER FREQUENCY:DAYS 1-5 EVERY 28;?
     Route: 048
     Dates: start: 20200923
  7. VITAMIN B12 [Concomitant]
     Active Substance: CYANOCOBALAMIN
  8. GABAPENTIN. [Concomitant]
     Active Substance: GABAPENTIN
  9. K PHOS [Concomitant]
  10. BISOPROL FUM [Concomitant]
     Active Substance: BISOPROLOL FUMARATE
  11. HYDROMORPHON [Concomitant]
     Active Substance: HYDROMORPHONE
  12. MORPHINE SUL [Concomitant]
     Active Substance: MORPHINE SULFATE
  13. PREDNISONE. [Concomitant]
     Active Substance: PREDNISONE

REACTIONS (1)
  - Pain [None]

NARRATIVE: CASE EVENT DATE: 20201228
